APPROVED DRUG PRODUCT: MEN'S ROGAINE
Active Ingredient: MINOXIDIL
Strength: 5%
Dosage Form/Route: AEROSOL, FOAM;TOPICAL
Application: N021812 | Product #001
Applicant: KENVUE BRANDS LLC
Approved: Jan 20, 2006 | RLD: Yes | RS: Yes | Type: OTC